FAERS Safety Report 15802026 (Version 1)
Quarter: 2018Q4

REPORT INFORMATION
  Report Type: Spontaneous
  Country: US (occurrence: US)
  Receive Date: 20181213
  Receipt Date: 20181213
  Transmission Date: 20190205
  Serious: No
  Sender: FDA-Public Use
  Company Number: None

PATIENT
  Age: 30 Year
  Sex: Female

DRUGS (1)
  1. HYDROXYPROGESTERONE 250MG/ML (1ML SDV) [Suspect]
     Active Substance: HYDROXYPROGESTERONE
     Dosage: ?          OTHER FREQUENCY:OTHER;?
     Route: 030
     Dates: start: 201808

REACTIONS (4)
  - Injection site erythema [None]
  - Pruritus [None]
  - Injection site mass [None]
  - Injection site swelling [None]

NARRATIVE: CASE EVENT DATE: 20181211
